FAERS Safety Report 8120419-5 (Version None)
Quarter: 2012Q1

REPORT INFORMATION
  Report Type: 
  Country: None (occurrence: None)
  Receive Date: 20120207
  Receipt Date: 20120123
  Transmission Date: 20120608
  Serious: Yes (Other)
  Sender: FDA-Public Use
  Company Number: CHPA2012US001640

PATIENT
  Sex: Female

DRUGS (1)
  1. EXCEDRIN MIGRAINE CAPLETS [Suspect]
     Indication: MIGRAINE
     Dosage: 2 DF, PRN
     Route: 048
     Dates: end: 20120110

REACTIONS (9)
  - SELF-INDUCED VOMITING [None]
  - EUPHORIC MOOD [None]
  - LIP SWELLING [None]
  - DRUG INEFFECTIVE [None]
  - CEREBROVASCULAR ACCIDENT [None]
  - HEADACHE [None]
  - EYE MOVEMENT DISORDER [None]
  - DIZZINESS [None]
  - SWOLLEN TONGUE [None]
